FAERS Safety Report 6773195-2 (Version None)
Quarter: 2010Q2

REPORT INFORMATION
  Report Type: 
  Country: None (occurrence: None)
  Receive Date: 20100616
  Receipt Date: 20091217
  Transmission Date: 20101027
  Serious: Yes (Death)
  Sender: FDA-Public Use
  Company Number: PHHY2009MY56693

PATIENT
  Age: 51 Year
  Sex: Male

DRUGS (1)
  1. GLEEVEC [Suspect]
     Indication: GASTROINTESTINAL STROMAL TUMOUR
     Dosage: 400 MG/DAY

REACTIONS (3)
  - LAPAROTOMY [None]
  - MALIGNANT NEOPLASM PROGRESSION [None]
  - PNEUMONIA [None]
